FAERS Safety Report 17851610 (Version 1)
Quarter: 2020Q2

REPORT INFORMATION
  Report Type: Spontaneous
  Country: BR (occurrence: BR)
  Receive Date: 20200602
  Receipt Date: 20200602
  Transmission Date: 20200714
  Serious: Yes (Hospitalization, Other)
  Sender: FDA-Public Use
  Company Number: BR-BRISTOL-MYERS SQUIBB COMPANY-BMS-2020-042951

PATIENT
  Age: 62 Year
  Sex: Female

DRUGS (2)
  1. ISONIAZID. [Suspect]
     Active Substance: ISONIAZID
     Indication: LATENT TUBERCULOSIS
     Route: 065
  2. ORENCIA [Suspect]
     Active Substance: ABATACEPT
     Indication: RHEUMATOID ARTHRITIS
     Dosage: UNK
     Route: 058

REACTIONS (2)
  - Jaundice [Unknown]
  - Hepatitis [Unknown]
